FAERS Safety Report 9466247 (Version 2)
Quarter: 2013Q3

REPORT INFORMATION
  Report Type: Spontaneous
  Country: DE (occurrence: DE)
  Receive Date: 20130820
  Receipt Date: 20130827
  Transmission Date: 20140515
  Serious: Yes (Death)
  Sender: FDA-Public Use
  Company Number: DE-PFIZER INC-2013236657

PATIENT
  Age: 65 Year
  Sex: Male
  Weight: 65 kg

DRUGS (4)
  1. TIGECYCLINE [Suspect]
     Indication: KLEBSIELLA INFECTION
     Dosage: 100 MG, DAILY
     Route: 042
     Dates: start: 20130311, end: 20130312
  2. MEROPENEM [Concomitant]
     Indication: KLEBSIELLA INFECTION
     Dosage: 6 G, DAILY
     Route: 042
     Dates: start: 20130213, end: 20130312
  3. VANCOMYCIN [Concomitant]
     Indication: BACTERIAL DISEASE CARRIER
     Dosage: 0.3 G, DAILY
     Route: 042
     Dates: start: 20130304, end: 20130312
  4. GERNEBCIN [Concomitant]
     Indication: ESCHERICHIA INFECTION
     Dosage: 160 MG, DAILY
     Route: 055
     Dates: start: 20120215, end: 20130312

REACTIONS (2)
  - Pneumonia [Fatal]
  - Sepsis [Fatal]
